FAERS Safety Report 11664609 (Version 1)
Quarter: 2015Q4

REPORT INFORMATION
  Report Type: Report from Study
  Country: US (occurrence: US)
  Receive Date: 20151027
  Receipt Date: 20151027
  Transmission Date: 20160304
  Serious: No
  Sender: FDA-Public Use
  Company Number: PHHY2013US092393

PATIENT
  Age: 7 Year
  Sex: Female

DRUGS (3)
  1. ACETAMINOPHEN. [Concomitant]
     Active Substance: ACETAMINOPHEN
     Indication: PRODUCT USED FOR UNKNOWN INDICATION
     Route: 065
  2. EXJADE [Suspect]
     Active Substance: DEFERASIROX
     Dosage: 625
     Route: 048
     Dates: start: 20110525, end: 20140724
  3. EXJADE [Suspect]
     Active Substance: DEFERASIROX
     Indication: HAEMOSIDEROSIS
     Dosage: 687
     Route: 048
     Dates: start: 20110523, end: 20140724

REACTIONS (1)
  - Molluscum contagiosum [Recovered/Resolved]

NARRATIVE: CASE EVENT DATE: 20121017
